FAERS Safety Report 8735574 (Version 7)
Quarter: 2012Q4

REPORT INFORMATION
  Report Type: 
  Country: US (occurrence: US)
  Receive Date: 20120822
  Receipt Date: 20121210
  Transmission Date: 20130627
  Serious: Yes (Other)
  Sender: FDA-Public Use
  Company Number: US-PFIZER INC-2012200763

PATIENT
  Age: 51 Year
  Sex: Female
  Weight: 92.97 kg

DRUGS (23)
  1. SUTENT [Suspect]
     Indication: METASTATIC RENAL CELL CARCINOMA
     Dosage: 25 mg daily, 42 day cycle
     Route: 048
     Dates: start: 20120808
  2. SUTENT [Suspect]
     Dosage: 50 mg daily, 42 day cycle
     Route: 048
     Dates: start: 20120918
  3. DIOVAN [Concomitant]
     Dosage: UNK
  4. TYLENOL WITH CODEINE [Concomitant]
     Indication: PAIN
     Dosage: at bed time as needed
  5. FLECTOR PATCHES [Concomitant]
     Indication: ARTHRITIC PAINS
     Dosage: UNK, as needed
  6. PEPCID [Concomitant]
     Dosage: UNK, as needed
  7. ALLI [Concomitant]
     Indication: WEIGHT CONTROL
     Dosage: UNK
  8. VITAMIN D [Concomitant]
     Dosage: UNK
  9. LANTUS [Concomitant]
     Dosage: at bed time
  10. ACTOS [Concomitant]
     Dosage: UNK, 2x/week
  11. FERROUS SULFATE [Concomitant]
     Route: 048
  12. FOLIC ACID [Concomitant]
     Route: 048
  13. LASIX [Concomitant]
  14. LIPITOR [Concomitant]
     Dosage: UNK
  15. ACETYLSALICYLIC ACID [Concomitant]
     Dosage: 81 mg, daily
  16. ALLOPURINOL [Concomitant]
     Dosage: 100 mg, daily
  17. LOVAZA [Concomitant]
     Dosage: 2 DF, 2x/day, 1 g x2 tabs twice daily
  18. VICTOZA [Concomitant]
     Dosage: 1.8 mg, daily
  19. FENOFIBRATE [Concomitant]
     Dosage: UNK
  20. VALACYCLOVIR [Concomitant]
     Dosage: daily
  21. EPZICOM [Concomitant]
     Dosage: UNK, 1x/day
  22. ISENTRESS [Concomitant]
     Dosage: UNK, 2x/day
  23. TYLENOL [Concomitant]
     Dosage: UNK

REACTIONS (25)
  - Blood pressure increased [Unknown]
  - Renal impairment [Unknown]
  - Anal haemorrhage [Recovered/Resolved]
  - Epistaxis [Recovered/Resolved]
  - Diarrhoea [Recovered/Resolved]
  - Abdominal pain [Recovering/Resolving]
  - Decreased appetite [Unknown]
  - Weight decreased [Unknown]
  - Dysgeusia [Unknown]
  - Chills [Unknown]
  - Pyrexia [Unknown]
  - Nasopharyngitis [Unknown]
  - Cough [Unknown]
  - Pyrexia [Unknown]
  - Chest pain [Unknown]
  - Epistaxis [Recovered/Resolved]
  - Upper respiratory tract infection [Unknown]
  - Pain in extremity [Unknown]
  - Nausea [Unknown]
  - Stomatitis [Recovered/Resolved]
  - Vomiting [Recovered/Resolved]
  - Protein total decreased [Unknown]
  - Skin lesion [Unknown]
  - Hypothyroidism [Unknown]
  - Diarrhoea [Recovered/Resolved]
